FAERS Safety Report 4780703-X (Version None)
Quarter: 2005Q3

REPORT INFORMATION
  Report Type: 
  Country: None (occurrence: None)
  Receive Date: 20050926
  Receipt Date: 20050921
  Transmission Date: 20060218
  Serious: Yes (Hospitalization, Other)
  Sender: FDA-Public Use
  Company Number: GBWYE882503AUG05

PATIENT
  Age: 84 Year
  Sex: Female

DRUGS (2)
  1. EFFEXOR [Suspect]
     Dosage: 37.5 MG 2X PER 1 DAY ORAL; REDUCED DOSE, ORAL
     Route: 048
     Dates: start: 20050614, end: 20050802
  2. EFFEXOR [Suspect]
     Dosage: 37.5 MG 2X PER 1 DAY ORAL; REDUCED DOSE, ORAL
     Route: 048
     Dates: start: 20050803, end: 20050806

REACTIONS (1)
  - GRAND MAL CONVULSION [None]
